FAERS Safety Report 19865760 (Version 1)
Quarter: 2021Q3

REPORT INFORMATION
  Report Type: Spontaneous
  Country: DE (occurrence: DE)
  Receive Date: 20210921
  Receipt Date: 20210921
  Transmission Date: 20211014
  Serious: Yes (Congenital Anomaly)
  Sender: FDA-Public Use
  Company Number: DE-UCBSA-2021043392

PATIENT
  Age: 0 Year

DRUGS (3)
  1. SIMPONI [Suspect]
     Active Substance: GOLIMUMAB
     Indication: AXIAL SPONDYLOARTHRITIS
     Route: 064
     Dates: start: 20171102, end: 20181023
  2. CIMZIA [Suspect]
     Active Substance: CERTOLIZUMAB PEGOL
     Indication: AXIAL SPONDYLOARTHRITIS
     Dosage: 200 MILLIGRAM, EV 2 WEEKS(QOW)
     Route: 064
     Dates: start: 20181106
  3. SULFASALAZINE. [Suspect]
     Active Substance: SULFASALAZINE
     Indication: AXIAL SPONDYLOARTHRITIS
     Dosage: 1000 MILLIGRAM, ONCE DAILY (QD)
     Route: 064
     Dates: start: 20180928, end: 20181106

REACTIONS (2)
  - Developmental hip dysplasia [Recovered/Resolved]
  - Maternal exposure during pregnancy [Unknown]

NARRATIVE: CASE EVENT DATE: 201809
